FAERS Safety Report 6081722-6 (Version None)
Quarter: 2009Q1

REPORT INFORMATION
  Report Type: 
  Country: None (occurrence: None)
  Receive Date: 20090129
  Receipt Date: 20070618
  Transmission Date: 20090719
  Serious: Yes (Other)
  Sender: FDA-Public Use
  Company Number: EUR 191

PATIENT
  Age: 41 Year
  Sex: Female

DRUGS (4)
  1. POTASSIUM CHLORIDE 20MEQ [Suspect]
     Dosage: 3 TABS BID, PO
     Route: 048
     Dates: start: 20070501
  2. PAROXETINE HCL [Concomitant]
  3. NORVASC [Concomitant]
  4. TRIAMTERENE [Concomitant]

REACTIONS (6)
  - CHOKING [None]
  - DIZZINESS [None]
  - INFECTION [None]
  - LOSS OF CONSCIOUSNESS [None]
  - PHARYNGITIS [None]
  - VERTIGO [None]
